FAERS Safety Report 8623489-0 (Version None)
Quarter: 2012Q3

REPORT INFORMATION
  Report Type: 
  Country: None (occurrence: None)
  Receive Date: 20120824
  Receipt Date: 20120824
  Transmission Date: 20120928
  Serious: Yes (Hospitalization)
  Sender: FDA-Public Use
  Company Number: None

PATIENT
  Sex: Male
  Weight: 63 kg

DRUGS (1)
  1. IRINOTECAN HCL [Suspect]
     Indication: PANCREATIC CARCINOMA METASTATIC
     Dosage: 160MG EVERY TWO- WEEKS IV DRIP
     Route: 041
     Dates: start: 20120710, end: 20120810

REACTIONS (2)
  - GASTRIC INFECTION [None]
  - DEHYDRATION [None]
